FAERS Safety Report 5360668-2 (Version None)
Quarter: 2007Q2

REPORT INFORMATION
  Report Type: 
  Country: None (occurrence: None)
  Receive Date: 20070618
  Receipt Date: 20070611
  Transmission Date: 20071010
  Serious: Yes (Other)
  Sender: FDA-Public Use
  Company Number: JP-MERCK-0706USA02439

PATIENT
  Age: 56 Year
  Sex: Female

DRUGS (9)
  1. FOSAMAX [Suspect]
     Indication: OSTEOPOROSIS
     Route: 048
     Dates: start: 20060101, end: 20070601
  2. FOIPAN [Concomitant]
     Route: 048
     Dates: start: 20030501
  3. CEREKINON [Concomitant]
     Route: 048
     Dates: start: 20030501
  4. PURSENNID [Concomitant]
     Route: 048
     Dates: start: 20030501
  5. BUSCOPAN [Concomitant]
     Route: 048
     Dates: start: 20040601
  6. [THERAPY UNSPECIFIED] [Concomitant]
     Route: 048
     Dates: start: 20061201
  7. HICEE [Concomitant]
     Route: 048
     Dates: start: 20061201
  8. PROMAC [Concomitant]
     Indication: ZINC DEFICIENCY
     Route: 048
  9. JUVELA N [Concomitant]
     Route: 048

REACTIONS (4)
  - DYSGEUSIA [None]
  - LIP DRY [None]
  - ORAL DISCOMFORT [None]
  - THIRST [None]
